FAERS Safety Report 7043259-7 (Version None)
Quarter: 2010Q4

REPORT INFORMATION
  Report Type: 
  Country: None (occurrence: None)
  Receive Date: 20101013
  Receipt Date: 20090917
  Transmission Date: 20110411
  Serious: No
  Sender: FDA-Public Use
  Company Number: US-ASTRAZENECA-2009SE13934

PATIENT
  Sex: Male
  Weight: 72.6 kg

DRUGS (4)
  1. SYMBICORT [Suspect]
     Dosage: 80/4.5 MCG 1 PUFF BID
     Route: 055
  2. ATENOLOL [Concomitant]
  3. GLYBURIDE [Concomitant]
  4. VITAMINS [Concomitant]

REACTIONS (7)
  - BURNING SENSATION [None]
  - DYSPHONIA [None]
  - FATIGUE [None]
  - MENTAL IMPAIRMENT [None]
  - MUSCULOSKELETAL PAIN [None]
  - PARAESTHESIA [None]
  - VISUAL IMPAIRMENT [None]
